FAERS Safety Report 21248349 (Version 1)
Quarter: 2022Q3

REPORT INFORMATION
  Report Type: Report from Study
  Country: DE (occurrence: DE)
  Receive Date: 20220824
  Receipt Date: 20220824
  Transmission Date: 20221027
  Serious: Yes (Other)
  Sender: FDA-Public Use
  Company Number: DE-009507513-2208DEU004032

PATIENT
  Sex: Female
  Weight: 55 kg

DRUGS (9)
  1. PEMETREXED [Suspect]
     Active Substance: PEMETREXED
     Indication: Non-small cell lung cancer
     Dosage: 835 MG
     Dates: start: 20220308, end: 20220510
  2. PEMBROLIZUMAB [Suspect]
     Active Substance: PEMBROLIZUMAB
     Indication: Non-small cell lung cancer
     Dosage: 200 MG
     Dates: start: 20220308, end: 20220510
  3. CISPLATIN [Suspect]
     Active Substance: CISPLATIN
     Indication: Non-small cell lung cancer
     Dosage: 125.25 MG
     Dates: start: 20220308, end: 20220510
  4. FOLIC ACID [Concomitant]
     Active Substance: FOLIC ACID
     Dosage: 4 UG, 1X/DAY
     Route: 048
  5. PARACETAMOL-RATIOPHARM [Concomitant]
     Dosage: 1 GRAM, DAILY
     Route: 048
     Dates: start: 20220510, end: 20220510
  6. PARACETAMOL-RATIOPHARM [Concomitant]
     Dosage: 1 G, 1X/DAY
     Dates: start: 20220510, end: 20220510
  7. DEXAMETHASONE [Concomitant]
     Active Substance: DEXAMETHASONE
     Dosage: 8 MG, 1X/DAY
     Route: 042
     Dates: start: 20220510, end: 20220510
  8. GRANISETRON HYDROCHLORIDE [Concomitant]
     Active Substance: GRANISETRON HYDROCHLORIDE
     Dosage: 1 MG/ML, 1X/DAY
     Route: 042
     Dates: start: 20220510, end: 20220510
  9. APREPITANT [Concomitant]
     Active Substance: APREPITANT
     Dosage: 125 MG, 1X/DAY
     Route: 048
     Dates: start: 20220510, end: 20220512

REACTIONS (1)
  - Pneumonitis [Recovering/Resolving]

NARRATIVE: CASE EVENT DATE: 20220527
